FAERS Safety Report 11044985 (Version 11)
Quarter: 2021Q1

REPORT INFORMATION
  Report Type: Spontaneous
  Country: US (occurrence: US)
  Receive Date: 20150417
  Receipt Date: 20210208
  Transmission Date: 20210419
  Serious: Yes (Hospitalization, Other)
  Sender: FDA-Public Use
  Company Number: US-PFIZER INC-2015128904

PATIENT
  Age: 64 Year
  Sex: Female
  Weight: 111 kg

DRUGS (39)
  1. LYRICA [Suspect]
     Active Substance: PREGABALIN
     Dosage: 450 MG, DAILY
     Dates: start: 20210113
  2. ASTELIN [Concomitant]
     Active Substance: AZELASTINE HYDROCHLORIDE
     Dosage: 1 SPRAY IN EACH NOSTRIL, 2X/DAY
     Route: 045
  3. CALCIUM ERGOCALCIFEROL [Concomitant]
     Dosage: 6 DF (250?125 MG UNIT), DAILY
     Route: 048
  4. MULTIVITAMINS;MINERALS [Suspect]
     Active Substance: MINERALS\VITAMINS
     Dosage: 1 DF, DAILY
     Route: 048
  5. OSCAL D [Concomitant]
     Active Substance: CALCIUM CARBONATE\CHOLECALCIFEROL
     Dosage: 3 DF, 2X/DAY
     Route: 048
  6. QUESTRAN [Concomitant]
     Active Substance: CHOLESTYRAMINE
     Indication: CLOSTRIDIUM DIFFICILE COLITIS
  7. TYLENOL [Concomitant]
     Active Substance: ACETAMINOPHEN
     Indication: PAIN
     Dosage: 1000 MG, EVERY 6 HOURS AS NEEDED
     Route: 048
  8. VOLTAREN [Concomitant]
     Active Substance: DICLOFENAC SODIUM
     Indication: ARTHRALGIA
  9. WELLBUTRIN SR [Concomitant]
     Active Substance: BUPROPION HYDROCHLORIDE
     Dosage: 200 MG, 2X/DAY
     Route: 048
  10. COMBIVENT RESPIMAT [Concomitant]
     Active Substance: ALBUTEROL SULFATE\IPRATROPIUM BROMIDE
     Dosage: 1 PUFF, 4X/DAY
  11. FLONASE [Concomitant]
     Active Substance: FLUTICASONE PROPIONATE
     Indication: RHINITIS
     Dosage: 50 MCG/ACT, 2 SPRAYS IN EACH NOSTRIL DAILY AS NEEDED
     Route: 045
  12. FLONASE [Concomitant]
     Active Substance: FLUTICASONE PROPIONATE
     Indication: SEASONAL ALLERGY
  13. NORCO [Concomitant]
     Active Substance: ACETAMINOPHEN\HYDROCODONE BITARTRATE
     Dosage: 7.2?325 MG, 1?2 TABLETS 3 TIMES DAILY AS NEEDED
     Route: 048
  14. VITAMIN C [Concomitant]
     Active Substance: ASCORBIC ACID
     Dosage: 500 MG, DAILY
     Route: 048
  15. XANAX [Concomitant]
     Active Substance: ALPRAZOLAM
     Dosage: 1 MG, AS NEEDED (2 TIMES DAILY)
     Route: 048
  16. BUSPAR [Concomitant]
     Active Substance: BUSPIRONE HYDROCHLORIDE
     Dosage: 30 MG, 2X/DAY
     Route: 048
  17. COUMADIN [Concomitant]
     Active Substance: WARFARIN SODIUM
     Dosage: 10 MG DAILY, ALL OTHER DAYS (6 DAYS)
     Route: 048
  18. MAG?OX [Concomitant]
     Active Substance: MAGNESIUM OXIDE
     Dosage: 400 MG, 1X/DAY
     Route: 048
  19. WELLBUTRIN SR [Concomitant]
     Active Substance: BUPROPION HYDROCHLORIDE
     Dosage: 150 MG, 2X/DAY
     Route: 048
  20. XANAX [Concomitant]
     Active Substance: ALPRAZOLAM
     Indication: ANXIETY
     Dosage: 1 MG, AS NEEDED (THREE TIMES A DAY AS NEEDED )
     Route: 048
  21. LYRICA [Suspect]
     Active Substance: PREGABALIN
     Indication: PAIN
     Dosage: 150 MG, 3X/DAY (2 CAPSULE IN THE MORNING AND ONE IN THE EVENING) (2 CAPSULES DAILY IN AM, 1 NIGHTLY)
     Route: 048
     Dates: start: 20160104
  22. CLARITIN [Concomitant]
     Active Substance: LORATADINE
     Indication: SEASONAL ALLERGY
     Dosage: 10 MG, DAILY
     Route: 048
  23. MELATONIN [Concomitant]
     Active Substance: MELATONIN
     Dosage: 6 MG, 1X/DAY (NIGHTLY)
     Route: 048
  24. MULTIVITAMINS;MINERALS [Suspect]
     Active Substance: MINERALS\VITAMINS
     Dosage: 6 DF, DAILY
     Route: 048
  25. POTASSIUM GLUCONATE [Concomitant]
     Active Substance: POTASSIUM GLUCONATE
     Dosage: UNK
     Route: 048
  26. VITAMIN D3 [Concomitant]
     Active Substance: CHOLECALCIFEROL
     Dosage: 5000 IU, DAILY
     Route: 048
  27. COUMADIN [Concomitant]
     Active Substance: WARFARIN SODIUM
     Dosage: 300 MG, DAILY (THEN ADJUST BASED ON INK)
     Route: 048
  28. NORCO [Concomitant]
     Active Substance: ACETAMINOPHEN\HYDROCODONE BITARTRATE
     Indication: PAIN
     Dosage: 10?325 MG, 1 TABLET, EVERY 6 HOURS AS NEEDED
     Route: 048
  29. QUESTRAN [Concomitant]
     Active Substance: CHOLESTYRAMINE
     Indication: DIARRHOEA
     Dosage: 4 G, 2X/DAY (AS NEEDED )
     Route: 048
  30. VOLTAREN [Concomitant]
     Active Substance: DICLOFENAC SODIUM
     Indication: JOINT INJURY
     Dosage: 2 G, 4X/DAY
     Route: 061
  31. LYRICA [Suspect]
     Active Substance: PREGABALIN
     Indication: DIABETIC NEUROPATHY
     Dosage: 50 MG
  32. LYRICA [Suspect]
     Active Substance: PREGABALIN
     Indication: ARTHRALGIA
     Dosage: 20 MG, 3X/DAY
  33. COUMADIN [Concomitant]
     Active Substance: WARFARIN SODIUM
     Dosage: 5 MG, ON WED
     Route: 048
  34. GEODON [Concomitant]
     Active Substance: ZIPRASIDONE HYDROCHLORIDE\ZIPRASIDONE MESYLATE
     Dosage: 40 MG, 2X/DAY(WITH MEALS)
     Route: 048
  35. LIPITOR [Concomitant]
     Active Substance: ATORVASTATIN CALCIUM
     Dosage: 20 MG, 1X/DAY (EVERY EVENING)
     Route: 048
  36. PRILOSEC [Concomitant]
     Active Substance: OMEPRAZOLE MAGNESIUM
     Dosage: 20 MG, 1X/DAY
     Route: 048
  37. PRILOSEC [Concomitant]
     Active Substance: OMEPRAZOLE MAGNESIUM
     Dosage: 20 MG, 2X/DAY
     Route: 048
  38. RESTORIL [Concomitant]
     Active Substance: TEMAZEPAM
     Indication: SLEEP DISORDER
     Dosage: 7.5 MG, NIGHTLY AS NEEDED
     Route: 048
  39. VOLTAREN [Concomitant]
     Active Substance: DICLOFENAC SODIUM
     Indication: ARTHROPATHY

REACTIONS (9)
  - Clostridium difficile colitis [Not Recovered/Not Resolved]
  - Head injury [Recovered/Resolved]
  - Pneumonia [Recovered/Resolved]
  - Confusional state [Unknown]
  - Tremor [Unknown]
  - Illness [Recovered/Resolved]
  - Disease recurrence [Not Recovered/Not Resolved]
  - Fall [Recovered/Resolved]
  - Pain [Unknown]
